FAERS Safety Report 9489996 (Version 2)
Quarter: 2013Q3

REPORT INFORMATION
  Report Type: Report from Study
  Country: BR (occurrence: BR)
  Receive Date: 20130829
  Receipt Date: 20130905
  Transmission Date: 20140515
  Serious: No
  Sender: FDA-Public Use
  Company Number: BR-ABBOTT-13P-020-1138889-00

PATIENT
  Sex: Female

DRUGS (1)
  1. HUMIRA [Suspect]
     Indication: ANKYLOSING SPONDYLITIS
     Route: 058

REACTIONS (4)
  - Malaise [Unknown]
  - Communication disorder [Unknown]
  - Aphonia [Not Recovered/Not Resolved]
  - Influenza [Recovered/Resolved]
